FAERS Safety Report 10025891 (Version 1)
Quarter: 2014Q1

REPORT INFORMATION
  Report Type: Spontaneous
  Country: FR (occurrence: None)
  Receive Date: 20140314
  Receipt Date: 20140314
  Transmission Date: 20141002
  Serious: Yes (Hospitalization)
  Sender: FDA-Public Use
  Company Number: FK201400780

PATIENT
  Age: 64 Year
  Sex: Female

DRUGS (2)
  1. PROPOFOL [Suspect]
     Indication: GENERAL ANAESTHESIA
     Route: 042
     Dates: start: 20131118, end: 20131118
  2. ULTIVA (REMIFENTANIL HYDROCHLORIDE) (REMIFENTANIL?HYDROCHLORIDE) [Concomitant]

REACTIONS (1)
  - Anaphylactic shock [None]
